FAERS Safety Report 5616266-6 (Version None)
Quarter: 2008Q1

REPORT INFORMATION
  Report Type: 
  Country: None (occurrence: None)
  Receive Date: 20080205
  Receipt Date: 20080124
  Transmission Date: 20080703
  Serious: Yes (Hospitalization, Other)
  Sender: FDA-Public Use
  Company Number: 2008AP000255

PATIENT
  Age: 42 Year
  Sex: Male

DRUGS (1)
  1. LITHIUM CARBONATE CAP [Suspect]
     Indication: AGGRESSION
     Dosage: PO; 300 MG;TID;PO
     Route: 048

REACTIONS (4)
  - BLOOD PRESSURE DIASTOLIC DECREASED [None]
  - BRUGADA SYNDROME [None]
  - ELECTROCARDIOGRAM ST SEGMENT ELEVATION [None]
  - ELECTROCARDIOGRAM T WAVE INVERSION [None]
